FAERS Safety Report 18985948 (Version 1)
Quarter: 2021Q1

REPORT INFORMATION
  Report Type: Spontaneous
  Country: US (occurrence: US)
  Receive Date: 20210308
  Receipt Date: 20210308
  Transmission Date: 20210420
  Serious: Yes (Hospitalization)
  Sender: FDA-Public Use
  Company Number: None

PATIENT
  Age: 59 Year
  Sex: Female

DRUGS (1)
  1. ENBREL [Suspect]
     Active Substance: ETANERCEPT
     Indication: RHEUMATOID ARTHRITIS
     Dosage: ?          OTHER FREQUENCY:WEEKLY;?
     Route: 058
     Dates: start: 20201224

REACTIONS (7)
  - Loss of personal independence in daily activities [None]
  - Therapy interrupted [None]
  - Joint swelling [None]
  - Musculoskeletal stiffness [None]
  - Arthralgia [None]
  - Post procedural infection [None]
  - Rheumatoid arthritis [None]

NARRATIVE: CASE EVENT DATE: 20210125
